FAERS Safety Report 7433751-5 (Version None)
Quarter: 2011Q2

REPORT INFORMATION
  Report Type: 
  Country: None (occurrence: None)
  Receive Date: 20110424
  Receipt Date: 20110418
  Transmission Date: 20111010
  Serious: Yes (Life-Threatening)
  Sender: FDA-Public Use
  Company Number: JP-ELI_LILLY_AND_COMPANY-JP201102005696

PATIENT
  Sex: Female
  Weight: 60 kg

DRUGS (7)
  1. ASPIRIN [Concomitant]
     Indication: THROMBOSIS PROPHYLAXIS
     Dosage: 100 MG, DAILY (1/D)
     Route: 048
     Dates: start: 20110211
  2. PARIET [Concomitant]
     Indication: PROPHYLAXIS AGAINST GASTROINTESTINAL ULCER
     Dosage: 10 MG, DAILY (1/D)
     Route: 048
     Dates: start: 20110211
  3. HEPARIN [Concomitant]
     Indication: ACUTE MYOCARDIAL INFARCTION
     Dosage: UNK
     Dates: start: 20110213
  4. PRASUGREL HYDROCHLORIDE [Suspect]
     Indication: ACUTE CORONARY SYNDROME
     Dosage: UNK
     Route: 048
     Dates: start: 20110211, end: 20110213
  5. DIOVAN [Concomitant]
     Indication: HYPERTENSION
     Dosage: 4 MG, DAILY (1/D)
     Route: 048
     Dates: start: 20110211
  6. CALBLOCK [Concomitant]
     Indication: HYPERTENSION
     Dosage: 16 MG, QD
     Route: 048
     Dates: start: 20110212
  7. SIGMART [Concomitant]
     Indication: VASODILATATION
     Dosage: 5 MG, 3/D
     Route: 048
     Dates: start: 20110211

REACTIONS (1)
  - ATRIOVENTRICULAR BLOCK COMPLETE [None]
